FAERS Safety Report 5081056-2 (Version None)
Quarter: 2006Q3

REPORT INFORMATION
  Report Type: 
  Country: None (occurrence: None)
  Receive Date: 20060810
  Receipt Date: 20060119
  Transmission Date: 20061208
  Serious: Yes (Other)
  Sender: FDA-Public Use
  Company Number: CHPA2006US00993

PATIENT
  Age: 55 Year
  Sex: Male
  Weight: 70.7 kg

DRUGS (2)
  1. EXCEDRIN (MIGRAINE) [Suspect]
     Indication: POST PROCEDURAL HEADACHE
     Dosage: 1 DF, BID, ORAL
     Route: 048
  2. EXCEDRIN PM  (ACETAMINOPHEN (PARACETAMOL), DIPHENHYDRAMINE HYDROCHLORI [Suspect]
     Indication: POST PROCEDURAL HEADACHE
     Dosage: 2 DF, QHS, ORAL
     Route: 048

REACTIONS (2)
  - DRUG ABUSER [None]
  - NO ADVERSE DRUG EFFECT [None]
